FAERS Safety Report 4743456-7 (Version None)
Quarter: 2005Q3

REPORT INFORMATION
  Report Type: 
  Country: None (occurrence: None)
  Receive Date: 20050810
  Receipt Date: 20050810
  Transmission Date: 20060218
  Serious: Yes (Other)
  Sender: FDA-Public Use
  Company Number: None

PATIENT

DRUGS (1)
  1. CYMBALTA [Suspect]
     Indication: ANTIDEPRESSANT THERAPY
     Dosage: 1 TABLET
     Route: 048
     Dates: start: 20050720, end: 20050720

REACTIONS (2)
  - HALLUCINATION [None]
  - HYPERSENSITIVITY [None]
